FAERS Safety Report 8541906-1 (Version None)
Quarter: 2012Q3

REPORT INFORMATION
  Report Type: 
  Country: None (occurrence: None)
  Receive Date: 20120726
  Receipt Date: 20110908
  Transmission Date: 20120928
  Serious: No
  Sender: FDA-Public Use
  Company Number: US-ASTRAZENECA-2011SE53999

PATIENT
  Age: 46 Year
  Sex: Female
  Weight: 63.5 kg

DRUGS (6)
  1. XANAX [Concomitant]
     Indication: ANXIETY
  2. SEROQUEL XR [Suspect]
     Indication: SLEEP DISORDER
     Route: 048
  3. PROZAC [Concomitant]
     Indication: DEPRESSION
  4. SEROQUEL XR [Suspect]
     Indication: ANXIETY
     Route: 048
  5. SEROQUEL XR [Suspect]
     Indication: DEPRESSION
     Route: 048
  6. SEROQUEL XR [Suspect]
     Indication: NERVOUSNESS
     Route: 048

REACTIONS (3)
  - OFF LABEL USE [None]
  - DRUG DOSE OMISSION [None]
  - INSOMNIA [None]
